FAERS Safety Report 9336800 (Version 3)
Quarter: 2014Q2

REPORT INFORMATION
  Report Type: Spontaneous
  Country: US (occurrence: US)
  Receive Date: 20130607
  Receipt Date: 20140423
  Transmission Date: 20141212
  Serious: Yes (Hospitalization, Other)
  Sender: FDA-Public Use
  Company Number: US-BAYER-2013-067327

PATIENT
  Age: 30 Year
  Sex: Female
  Weight: 81.63 kg

DRUGS (4)
  1. MIRENA [Suspect]
     Indication: CONTRACEPTION
     Dosage: 20 MCG/24HR, CONT
     Route: 015
     Dates: start: 20090924, end: 20100629
  2. MOTRIN [Concomitant]
     Dosage: 800 MG, UNK
  3. DILAUDID [Concomitant]
     Dosage: 2 MG, UNK
  4. COLACE [Concomitant]
     Dosage: 100 MG, UNK

REACTIONS (6)
  - Ovarian cyst ruptured [None]
  - Uterine perforation [None]
  - Injury [None]
  - Pain [None]
  - Emotional distress [None]
  - Anxiety [None]
